FAERS Safety Report 6426569-3 (Version None)
Quarter: 2009Q4

REPORT INFORMATION
  Report Type: 
  Country: None (occurrence: None)
  Receive Date: 20091030
  Receipt Date: 20091022
  Transmission Date: 20100525
  Serious: Yes (Hospitalization)
  Sender: FDA-Public Use
  Company Number: 2009SP023566

PATIENT
  Age: 24 Year
  Sex: Female
  Weight: 40 kg

DRUGS (2)
  1. MARVELON 21 (DESOGESTREL/ ETHINYLESTRADIOL) [Suspect]
     Indication: CONTRACEPTION
     Dosage: 1 DF;QD;PO
     Route: 048
     Dates: start: 20050906
  2. TRIDIOL [Concomitant]

REACTIONS (2)
  - APPENDICITIS [None]
  - DIVERTICULITIS [None]
